FAERS Safety Report 21151101 (Version 1)
Quarter: 2022Q3

REPORT INFORMATION
  Report Type: Report from Study
  Country: BR (occurrence: BR)
  Receive Date: 20220729
  Receipt Date: 20220729
  Transmission Date: 20221026
  Serious: Yes (Other)
  Sender: FDA-Public Use
  Company Number: BR-ABBVIE-22K-020-4486037-00

PATIENT
  Sex: Female
  Weight: 85 kg

DRUGS (7)
  1. RINVOQ [Suspect]
     Active Substance: UPADACITINIB
     Indication: Rheumatoid arthritis
     Route: 048
     Dates: start: 20211101
  2. INSULIN NOS [Concomitant]
     Active Substance: INSULIN NOS
     Indication: Diabetes mellitus
     Dosage: REGULAR INSULIN
  3. NPH INSULIN [Concomitant]
     Active Substance: INSULIN BEEF
     Indication: Diabetes mellitus
  4. LOSARTAN [Concomitant]
     Active Substance: LOSARTAN
     Indication: Hypertension
  5. TOPIRAMATE [Concomitant]
     Active Substance: TOPIRAMATE
     Indication: Anxiety
  6. SERTRALINE [Concomitant]
     Active Substance: SERTRALINE HYDROCHLORIDE
     Indication: Anxiety
  7. RIVOTRIL [Concomitant]
     Active Substance: CLONAZEPAM
     Indication: Anxiety
     Dosage: IF NECESSARY
     Route: 060

REACTIONS (1)
  - Mycobacterium tuberculosis complex test positive [Unknown]
